FAERS Safety Report 11547936 (Version 1)
Quarter: 2015Q3

REPORT INFORMATION
  Report Type: Spontaneous
  Country: US (occurrence: US)
  Receive Date: 20150924
  Receipt Date: 20150924
  Transmission Date: 20151125
  Serious: No
  Sender: FDA-Public Use
  Company Number: US-AMNEAL PHARMACEUTICALS-2015AMN00029

PATIENT
  Age: 65 Year
  Sex: Female
  Weight: 43.84 kg

DRUGS (6)
  1. GABAPENTIN. [Suspect]
     Active Substance: GABAPENTIN
     Indication: NEURALGIA
     Dosage: 2 CAPSULES, 3X/DAY
     Route: 048
     Dates: start: 2012, end: 20140903
  2. AMITRIPTYLINE [Concomitant]
     Active Substance: AMITRIPTYLINE
     Dosage: 1 TABLETS, 1X/DAY
  3. VALIUM [Concomitant]
     Active Substance: DIAZEPAM
     Dosage: 1 TABLETS, 3 TIMES A DAY AS NEEDED
  4. VITAMIN B12 [Concomitant]
     Active Substance: CYANOCOBALAMIN
     Dosage: 1000 ?L, 1X/MONTH
  5. HYDROCONE 10 MG / ACETAMINOPHEN 325 MG [Concomitant]
     Dosage: 1 TABLETS, EVER 4-6 HOURS AS NEEDED
  6. DEXILANT [Concomitant]
     Active Substance: DEXLANSOPRAZOLE
     Dosage: 1 CAPSULES, 1X/DAY

REACTIONS (4)
  - Drug ineffective [Not Recovered/Not Resolved]
  - Weight decreased [Not Recovered/Not Resolved]
  - Insomnia [Not Recovered/Not Resolved]
  - Psychomotor hyperactivity [Not Recovered/Not Resolved]

NARRATIVE: CASE EVENT DATE: 20140827
